FAERS Safety Report 20993327 (Version 1)
Quarter: 2022Q2

REPORT INFORMATION
  Report Type: Spontaneous
  Country: US (occurrence: None)
  Receive Date: 20220621
  Receipt Date: 20220621
  Transmission Date: 20220720
  Serious: Yes (Other)
  Sender: FDA-Public Use
  Company Number: None

PATIENT
  Age: 42 Year
  Sex: Female
  Weight: 87.84 kg

DRUGS (8)
  1. LUMATEPERONE [Suspect]
     Active Substance: LUMATEPERONE
     Indication: Bipolar disorder
     Dosage: FREQUENCY : DAILY;?
     Route: 048
     Dates: start: 20220425, end: 20220610
  2. PAROXETINE [Concomitant]
     Active Substance: PAROXETINE
     Dates: start: 20210928
  3. CLONAZEPAM [Concomitant]
     Active Substance: CLONAZEPAM
     Dates: start: 20220608
  4. CARVEDILOL [Concomitant]
     Active Substance: CARVEDILOL
     Dates: start: 20220405
  5. NORETHINDRONE ACETATE [Concomitant]
     Active Substance: NORETHINDRONE ACETATE
     Dates: start: 20220602
  6. OMEPRAZOLE [Concomitant]
     Active Substance: OMEPRAZOLE
     Dates: start: 20171227
  7. ROSUVASTATIN [Concomitant]
     Active Substance: ROSUVASTATIN
     Dates: start: 20190819
  8. ondansetron 4mg bid prn (rare use) [Concomitant]
     Dates: start: 20220425

REACTIONS (9)
  - Serotonin syndrome [None]
  - Hyperhidrosis [None]
  - Yawning [None]
  - Muscle rigidity [None]
  - Diarrhoea [None]
  - Tremor [None]
  - Anxiety [None]
  - Nystagmus [None]
  - Fear [None]

NARRATIVE: CASE EVENT DATE: 20220610
